FAERS Safety Report 21033508 (Version 1)
Quarter: 2022Q3

REPORT INFORMATION
  Report Type: Spontaneous
  Country: FR (occurrence: FR)
  Receive Date: 20220701
  Receipt Date: 20220701
  Transmission Date: 20221026
  Serious: Yes (Death, Hospitalization)
  Sender: FDA-Public Use
  Company Number: FR-JNJFOC-20220660300

PATIENT
  Age: 80 Year
  Sex: Female

DRUGS (1)
  1. SPRAVATO [Suspect]
     Active Substance: ESKETAMINE
     Indication: Product used for unknown indication
     Dates: start: 20220407

REACTIONS (3)
  - Death [Fatal]
  - Agitation [Unknown]
  - Catatonia [Unknown]

NARRATIVE: CASE EVENT DATE: 20220101
